FAERS Safety Report 6022343-0 (Version None)
Quarter: 2008Q4

REPORT INFORMATION
  Report Type: 
  Country: None (occurrence: None)
  Receive Date: 20081230
  Receipt Date: 20081216
  Transmission Date: 20090506
  Serious: Yes (Life-Threatening, Hospitalization)
  Sender: FDA-Public Use
  Company Number: FR-PFIZER INC-2008015492

PATIENT

DRUGS (2)
  1. HYDROXYZINE HCL [Suspect]
     Dosage: 100 MG, 3X/DAY
     Route: 048
  2. HYDROXYZINE HCL [Suspect]
     Dosage: 9 G, 1X/DAY
     Route: 048
     Dates: start: 20080213, end: 20080213

REACTIONS (12)
  - ALCOHOL USE [None]
  - BUNDLE BRANCH BLOCK LEFT [None]
  - DRY EYE [None]
  - ELECTROCARDIOGRAM QRS COMPLEX PROLONGED [None]
  - HAEMODIALYSIS [None]
  - HYPERTHERMIA [None]
  - NO THERAPEUTIC RESPONSE [None]
  - OVERDOSE [None]
  - SOMNOLENCE [None]
  - STATUS EPILEPTICUS [None]
  - SUICIDE ATTEMPT [None]
  - TACHYCARDIA [None]
